FAERS Safety Report 26199108 (Version 1)
Quarter: 2025Q4

REPORT INFORMATION
  Report Type: Spontaneous
  Country: US (occurrence: US)
  Receive Date: 20251225
  Receipt Date: 20251225
  Transmission Date: 20260118
  Serious: No
  Sender: SANOFI AVENTIS
  Company Number: US-SA-2025SA382843

PATIENT
  Age: 16 Year
  Sex: Female

DRUGS (2)
  1. DUPIXENT [Suspect]
     Active Substance: DUPILUMAB
     Indication: Dermatitis atopic
     Dosage: INJECT TWO PENS UNDER THE SKIN SUBCUTANEOUS INJECTION ON DAY ONE
     Route: 058
     Dates: start: 20251202, end: 20251202
  2. DUPIXENT [Suspect]
     Active Substance: DUPILUMAB
     Dosage: ONE PEN EVERY TWO WEEKS STARTING ON DAY 15
     Route: 058
     Dates: start: 202512

REACTIONS (2)
  - Nasopharyngitis [Unknown]
  - Dermatitis atopic [Recovering/Resolving]

NARRATIVE: CASE EVENT DATE: 20251201
